FAERS Safety Report 5050665-9 (Version None)
Quarter: 2006Q3

REPORT INFORMATION
  Report Type: 
  Country: None (occurrence: None)
  Receive Date: 20060710
  Receipt Date: 20060626
  Transmission Date: 20061208
  Serious: Yes (Disabling, Other)
  Sender: FDA-Public Use
  Company Number: 2006RR-02785

PATIENT
  Age: 43 Year
  Sex: Female

DRUGS (4)
  1. CLARITHROMYCIN [Suspect]
     Dosage: 500 MG
  2. LANSOPRAZOLE [Suspect]
     Indication: HELICOBACTER INFECTION
     Dosage: 30 MG, ORAL
     Route: 048
     Dates: start: 20060520, end: 20060522
  3. METRONIDAZOLE [Suspect]
     Dosage: 400 MG
  4. RANITIDINE [Concomitant]

REACTIONS (2)
  - MALAISE [None]
  - RASH [None]
